FAERS Safety Report 10238459 (Version 1)
Quarter: 2014Q2

REPORT INFORMATION
  Report Type: Spontaneous
  Country: US (occurrence: None)
  Receive Date: 20140613
  Receipt Date: 20140613
  Transmission Date: 20141212
  Serious: Yes (Hospitalization)
  Sender: FDA-Public Use
  Company Number: None

PATIENT
  Age: 76 Year
  Sex: Male
  Weight: 69.2 kg

DRUGS (1)
  1. CISPLATIN [Suspect]
     Route: 042
     Dates: start: 20131030, end: 20131030

REACTIONS (2)
  - Leukopenia [None]
  - Diarrhoea [None]
